FAERS Safety Report 5474589-8 (Version None)
Quarter: 2007Q3

REPORT INFORMATION
  Report Type: 
  Country: None (occurrence: None)
  Receive Date: 20070928
  Receipt Date: 20070912
  Transmission Date: 20080115
  Serious: Yes (Other)
  Sender: FDA-Public Use
  Company Number: PAR_01722_2007

PATIENT
  Age: 27 Year
  Sex: Male

DRUGS (7)
  1. IBUPROFEN [Suspect]
     Indication: PAIN
     Dosage: (ORAL)
     Route: 048
     Dates: start: 20070821, end: 20070823
  2. ACETYLSALICYLIC ACID [Suspect]
     Indication: PAIN
     Dosage: (ORAL)
     Route: 048
     Dates: start: 20070821, end: 20070823
  3. DIPHENHYDRAMINE HCL [Suspect]
     Indication: PAIN
     Dosage: (ORAL)
     Route: 048
     Dates: start: 20070821, end: 20070823
  4. IBUPROFEN [Suspect]
     Indication: PAIN
     Dosage: (ORAL)
     Route: 048
     Dates: start: 20070821, end: 20070823
  5. PARACETAMOL [Suspect]
     Indication: PAIN
     Dosage: (ORAL)
     Route: 048
     Dates: start: 20070821, end: 20070823
  6. PARACETAMOL [Suspect]
     Indication: PAIN
     Dosage: (ORAL)
     Route: 048
     Dates: start: 20070821, end: 20070823
  7. IBUPROFEN [Suspect]
     Indication: PAIN
     Dosage: (ORAL)
     Route: 048
     Dates: start: 20070821, end: 20070823

REACTIONS (4)
  - DIZZINESS [None]
  - DYSSTASIA [None]
  - HAEMATEMESIS [None]
  - MULTIPLE DRUG OVERDOSE INTENTIONAL [None]
